FAERS Safety Report 24391870 (Version 1)
Quarter: 2024Q4

REPORT INFORMATION
  Report Type: Spontaneous
  Country: US (occurrence: US)
  Receive Date: 20241003
  Receipt Date: 20241003
  Transmission Date: 20250115
  Serious: No
  Sender: ROCHE
  Company Number: US-ROCHE-10000091000

PATIENT
  Sex: Female
  Weight: 104.33 kg

DRUGS (3)
  1. ACTEMRA [Suspect]
     Active Substance: TOCILIZUMAB
     Indication: Giant cell arteritis
     Route: 058
     Dates: start: 20240306
  2. PREDNISONE [Suspect]
     Active Substance: PREDNISONE
     Indication: Giant cell arteritis
     Route: 065
     Dates: start: 202207, end: 202408
  3. PREDNISONE [Suspect]
     Active Substance: PREDNISONE
     Indication: Polymyalgia rheumatica

REACTIONS (4)
  - Illness [Recovered/Resolved]
  - Adrenal disorder [Recovered/Resolved]
  - Posture abnormal [Not Recovered/Not Resolved]
  - Weight decreased [Not Recovered/Not Resolved]
